FAERS Safety Report 18333066 (Version 1)
Quarter: 2020Q4

REPORT INFORMATION
  Report Type: Spontaneous
  Country: DE (occurrence: DE)
  Receive Date: 20201001
  Receipt Date: 20201001
  Transmission Date: 20210113
  Serious: Yes (Life-Threatening, Hospitalization, Other)
  Sender: FDA-Public Use
  Company Number: DE-ACCORD-203241

PATIENT
  Age: 48 Year
  Sex: Female

DRUGS (1)
  1. QUETIAPINE. [Suspect]
     Active Substance: QUETIAPINE
     Dosage: XR QUETIAPINE
     Route: 048

REACTIONS (5)
  - Bezoar [Recovered/Resolved]
  - Toxicity to various agents [Unknown]
  - Suicide attempt [Unknown]
  - Intentional overdose [Unknown]
  - Coma [Recovered/Resolved]
